FAERS Safety Report 17370923 (Version 3)
Quarter: 2020Q3

REPORT INFORMATION
  Report Type: Spontaneous
  Country: US (occurrence: US)
  Receive Date: 20200205
  Receipt Date: 20200810
  Transmission Date: 20201102
  Serious: Yes (Hospitalization, Other)
  Sender: FDA-Public Use
  Company Number: US-SA-2020SA027863

PATIENT

DRUGS (6)
  1. OMEGA 3 [FISH OIL] [Concomitant]
     Active Substance: FISH OIL
     Route: 065
  2. VITAMIN D3 [Concomitant]
     Active Substance: CHOLECALCIFEROL
     Route: 065
  3. TRAZODONE [Concomitant]
     Active Substance: TRAZODONE HYDROCHLORIDE
     Route: 065
  4. VITAMIN B COMPLEX [Concomitant]
     Active Substance: CYANOCOBALAMIN\DEXPANTHENOL\NIACINAMIDE\PYRIDOXINE HYDROCHLORIDE\RIBOFLAVIN 5^-PHOSPHATE SODIUM\THIAMINE HYDROCHLORIDE\VITAMIN B COMPLEX
     Route: 065
  5. B6 [Concomitant]
     Active Substance: PYRIDOXINE HYDROCHLORIDE
     Route: 065
  6. AUBAGIO [Suspect]
     Active Substance: TERIFLUNOMIDE
     Indication: MULTIPLE SCLEROSIS
     Dosage: 14 MG, QD
     Route: 048
     Dates: start: 201908

REACTIONS (13)
  - Fatigue [Unknown]
  - Pain in extremity [Unknown]
  - Multiple sclerosis [Unknown]
  - Balance disorder [Unknown]
  - Neck pain [Unknown]
  - Pain [Unknown]
  - Multiple sclerosis relapse [Unknown]
  - Arthralgia [Unknown]
  - Memory impairment [Unknown]
  - Depressed mood [Unknown]
  - Depression [Unknown]
  - Decreased interest [Unknown]
  - Feeling abnormal [Unknown]

NARRATIVE: CASE EVENT DATE: 202002
